FAERS Safety Report 13716932 (Version 2)
Quarter: 2018Q1

REPORT INFORMATION
  Report Type: Spontaneous
  Country: US (occurrence: US)
  Receive Date: 20170705
  Receipt Date: 20180327
  Transmission Date: 20180508
  Serious: Yes (Death, Hospitalization, Other)
  Sender: FDA-Public Use
  Company Number: US-BRISTOL-MYERS SQUIBB COMPANY-BMS-2017-059879

PATIENT
  Age: 87 Year
  Sex: Male

DRUGS (2)
  1. ELIQUIS [Suspect]
     Active Substance: APIXABAN
     Indication: CEREBROVASCULAR ACCIDENT PROPHYLAXIS
     Dosage: 1 TAB, BID
     Route: 048
  2. ROCEPHIN [Interacting]
     Active Substance: CEFTRIAXONE SODIUM
     Indication: INFECTION
     Route: 065

REACTIONS (13)
  - Infection [Unknown]
  - Skin discolouration [Unknown]
  - Contusion [Unknown]
  - Death [Fatal]
  - Cerebrovascular accident [Unknown]
  - Limb injury [Unknown]
  - Prostate cancer [Unknown]
  - Drug interaction [Unknown]
  - Aspiration [Unknown]
  - Haemorrhage [Unknown]
  - Fall [Unknown]
  - Pain in extremity [Unknown]
  - Off label use [Unknown]

NARRATIVE: CASE EVENT DATE: 2015
